FAERS Safety Report 14629351 (Version 1)
Quarter: 2018Q1

REPORT INFORMATION
  Report Type: Spontaneous
  Country: US (occurrence: US)
  Receive Date: 20180312
  Receipt Date: 20180312
  Transmission Date: 20180509
  Serious: Yes (Death)
  Sender: FDA-Public Use
  Company Number: None

PATIENT
  Age: 62 Year
  Sex: Female
  Weight: 84.15 kg

DRUGS (10)
  1. ZOFRAN 4MG [Concomitant]
     Dates: end: 20180309
  2. NEXAVAR [Suspect]
     Active Substance: SORAFENIB
     Indication: HEPATOCELLULAR CARCINOMA
     Route: 048
     Dates: start: 20171109
  3. CALCIUM [Concomitant]
     Active Substance: CALCIUM
     Dates: end: 20180309
  4. RISPERDAL [Concomitant]
     Active Substance: RISPERIDONE
     Dates: end: 20180309
  5. FOLIC ACID 1MG [Concomitant]
     Dates: end: 20180309
  6. SENNA 8.6MG [Concomitant]
     Dates: end: 20180309
  7. SERTRALINE 50MG [Concomitant]
     Active Substance: SERTRALINE HYDROCHLORIDE
     Dates: end: 20180309
  8. THERAGRAN M [Concomitant]
     Active Substance: VITAMINS
     Dates: end: 20180309
  9. B1 NATURAL 250MG [Concomitant]
     Dates: end: 20180309
  10. CHLORHALIDONE 25MG [Concomitant]
     Dates: end: 20180309

REACTIONS (1)
  - Death [None]

NARRATIVE: CASE EVENT DATE: 20180309
